FAERS Safety Report 8339216-0 (Version None)
Quarter: 2012Q2

REPORT INFORMATION
  Report Type: 
  Country: None (occurrence: None)
  Receive Date: 20120507
  Receipt Date: 20120427
  Transmission Date: 20120825
  Serious: Yes (Hospitalization)
  Sender: FDA-Public Use
  Company Number: RS-US-EMD SERONO, INC.-7126941

PATIENT
  Sex: Female

DRUGS (3)
  1. CETROTIDE [Suspect]
     Indication: IN VITRO FERTILISATION
     Route: 058
     Dates: start: 20120413, end: 20120418
  2. PUREGON 100 [Concomitant]
     Indication: IN VITRO FERTILISATION
     Dates: start: 20120419
  3. MENOPUR [Concomitant]
     Indication: IN VITRO FERTILISATION
     Dates: start: 20120419

REACTIONS (2)
  - PRURITUS [None]
  - RASH [None]
